FAERS Safety Report 11559000 (Version 1)
Quarter: 2015Q3

REPORT INFORMATION
  Report Type: Spontaneous
  Country: US (occurrence: US)
  Receive Date: 20150916
  Receipt Date: 20150916
  Transmission Date: 20151125
  Serious: No
  Sender: FDA-Public Use
  Company Number: US-ELI_LILLY_AND_COMPANY-US200807006368

PATIENT
  Sex: Female

DRUGS (2)
  1. LORAZEPAM. [Concomitant]
     Active Substance: LORAZEPAM
     Indication: DIZZINESS
  2. FORTEO [Suspect]
     Active Substance: TERIPARATIDE
     Dates: start: 20080619, end: 20080705

REACTIONS (9)
  - Constipation [Not Recovered/Not Resolved]
  - Flatulence [Not Recovered/Not Resolved]
  - Painful defaecation [Not Recovered/Not Resolved]
  - Abdominal pain [Not Recovered/Not Resolved]
  - Groin pain [Not Recovered/Not Resolved]
  - Proctalgia [Not Recovered/Not Resolved]
  - Haemorrhoids [Unknown]
  - Diarrhoea [Not Recovered/Not Resolved]
  - Abdominal distension [Not Recovered/Not Resolved]

NARRATIVE: CASE EVENT DATE: 2008
